FAERS Safety Report 6366816-X (Version None)
Quarter: 2009Q3

REPORT INFORMATION
  Report Type: 
  Country: None (occurrence: None)
  Receive Date: 20090921
  Receipt Date: 20090914
  Transmission Date: 20100115
  Serious: Yes (Hospitalization)
  Sender: FDA-Public Use
  Company Number: CA-AMGEN-US360277

PATIENT
  Weight: 3.12 kg

DRUGS (5)
  1. ENBREL [Suspect]
     Route: 064
     Dates: start: 20080920, end: 20081011
  2. VITAMIN TAB [Concomitant]
     Route: 064
  3. PERCOCET [Concomitant]
     Route: 064
     Dates: start: 20081029, end: 20090610
  4. PERCOCET [Concomitant]
     Dates: start: 20081017, end: 20081017
  5. PREDNISONE [Concomitant]
     Indication: SPONDYLOARTHROPATHY
     Route: 064
     Dates: start: 20090126, end: 20090610

REACTIONS (4)
  - GROUP B STREPTOCOCCUS NEONATAL SEPSIS [None]
  - MENINGITIS NEONATAL [None]
  - NEONATAL RESPIRATORY DISTRESS SYNDROME [None]
  - NEONATAL RESPIRATORY FAILURE [None]
